FAERS Safety Report 6556498-6 (Version None)
Quarter: 2010Q1

REPORT INFORMATION
  Report Type: 
  Country: None (occurrence: None)
  Receive Date: 20100128
  Receipt Date: 20100122
  Transmission Date: 20100710
  Serious: Yes (Death, Hospitalization)
  Sender: FDA-Public Use
  Company Number: RU-ELI_LILLY_AND_COMPANY-RU200912004471

PATIENT
  Age: 60 Year
  Sex: Female

DRUGS (5)
  1. ALIMTA [Suspect]
     Indication: COLON CANCER METASTATIC
     Dosage: 500 MG/M2, OTHER
     Route: 042
     Dates: start: 20090201
  2. CISPLATIN [Concomitant]
     Indication: COLON CANCER METASTATIC
     Dosage: 75 MG/M2, OTHER
     Route: 042
  3. FOLIC ACID [Concomitant]
  4. VITAMIN B-12 [Concomitant]
  5. DEXAMETHASONE [Concomitant]

REACTIONS (6)
  - COLON CANCER METASTATIC [None]
  - ENTERITIS [None]
  - FEBRILE NEUTROPENIA [None]
  - OFF LABEL USE [None]
  - STOMATITIS NECROTISING [None]
  - WRONG DRUG ADMINISTERED [None]
